FAERS Safety Report 6653064-9 (Version None)
Quarter: 2010Q1

REPORT INFORMATION
  Report Type: 
  Country: None (occurrence: None)
  Receive Date: 20100326
  Receipt Date: 20100317
  Transmission Date: 20100710
  Serious: Yes (Hospitalization, Other)
  Sender: FDA-Public Use
  Company Number: PHHY2010ES16048

PATIENT
  Age: 70 Year
  Sex: Female

DRUGS (4)
  1. RASILEZ [Suspect]
     Indication: HYPERTENSION
     Dosage: 300 MG, QD
  2. DIURETICS [Concomitant]
     Dosage: UNK
  3. ACE INHIBITOR NOS [Concomitant]
     Dosage: UNK
  4. BETA BLOCKING AGENTS [Concomitant]
     Dosage: UNK

REACTIONS (2)
  - CARDIAC PACEMAKER INSERTION [None]
  - HYPERKALAEMIA [None]
